FAERS Safety Report 23096691 (Version 10)
Quarter: 2024Q3

REPORT INFORMATION
  Report Type: Spontaneous
  Country: CA (occurrence: CA)
  Receive Date: 20231023
  Receipt Date: 20240806
  Transmission Date: 20241017
  Serious: Yes (Other)
  Sender: PFIZER
  Company Number: CA-PFIZER INC-202300283583

PATIENT
  Age: 58 Year
  Sex: Male
  Weight: 103.6 kg

DRUGS (26)
  1. RUXIENCE [Suspect]
     Active Substance: RITUXIMAB-PVVR
     Indication: Granulomatosis with polyangiitis
     Dosage: 825 MG, WEEKLY, (375MG X PATIENT^S BSA), WEEKLY FOR 4 WEEKS (WEEK 0)
     Route: 042
     Dates: start: 20231018
  2. RUXIENCE [Suspect]
     Active Substance: RITUXIMAB-PVVR
     Dosage: 825 MG, WEEKLY, FOR 4 WEEKS (WEEK 0)
     Route: 042
     Dates: start: 20231018
  3. RUXIENCE [Suspect]
     Active Substance: RITUXIMAB-PVVR
     Dosage: 825 MG, 2 WEEKS
     Route: 042
     Dates: start: 20231025
  4. RUXIENCE [Suspect]
     Active Substance: RITUXIMAB-PVVR
     Dosage: 825 MG, 2 WEEKS
     Route: 042
     Dates: start: 20231025
  5. RUXIENCE [Suspect]
     Active Substance: RITUXIMAB-PVVR
     Dosage: 825 MG, 2 WEEKS
     Route: 042
     Dates: start: 20231025
  6. RUXIENCE [Suspect]
     Active Substance: RITUXIMAB-PVVR
     Dosage: 825 MG, AFTER 1 WEEK
     Route: 042
     Dates: start: 20231102
  7. RUXIENCE [Suspect]
     Active Substance: RITUXIMAB-PVVR
     Dosage: 825 MG, AFTER 1 WEEK
     Route: 042
     Dates: start: 20231102
  8. RUXIENCE [Suspect]
     Active Substance: RITUXIMAB-PVVR
     Dosage: 825 MG, WEEKLY (4 WEEKS)
     Route: 042
     Dates: start: 20231108
  9. RUXIENCE [Suspect]
     Active Substance: RITUXIMAB-PVVR
     Dosage: 1 DF, WEEKLY (787.5 MG 4 WEEKS)
     Route: 042
     Dates: start: 20240711
  10. RUXIENCE [Suspect]
     Active Substance: RITUXIMAB-PVVR
     Dosage: 1 DF, WEEKLY,  (787.5 MG 4 WEEKS)
     Route: 042
     Dates: start: 20240711
  11. RUXIENCE [Suspect]
     Active Substance: RITUXIMAB-PVVR
     Dosage: 787.5MG, DAY 15 (1 DF, WEEKLY,  (787.5 MG 4 WEEKS)
     Route: 042
     Dates: start: 20240725
  12. RUXIENCE [Suspect]
     Active Substance: RITUXIMAB-PVVR
     Dosage: 787.5MG, DAY 15 (1 DF, WEEKLY,  (787.5 MG 4 WEEKS)
     Route: 042
     Dates: start: 20240725
  13. RUXIENCE [Suspect]
     Active Substance: RITUXIMAB-PVVR
     Dosage: 787.5MG,  RETREATMENT, WEEKLY FOR 4 WEEKS (W3) (1 DF , WEEKLY , 787.5 MG 4 WEEKS.)
     Route: 042
     Dates: start: 20240801
  14. RUXIENCE [Suspect]
     Active Substance: RITUXIMAB-PVVR
     Dosage: 787.5MG,  RETREATMENT, WEEKLY FOR 4 WEEKS (W3) (1 DF , WEEKLY , 787.5 MG 4 WEEKS.)
     Route: 042
     Dates: start: 20240801
  15. ACETAMINOPHEN [Concomitant]
     Active Substance: ACETAMINOPHEN
     Indication: Premedication
     Dosage: UNK
     Dates: start: 20231102
  16. ACETAMINOPHEN [Concomitant]
     Active Substance: ACETAMINOPHEN
     Dosage: 650 MG
     Route: 048
     Dates: start: 20231108
  17. ACETAMINOPHEN [Concomitant]
     Active Substance: ACETAMINOPHEN
     Dosage: 650 MG
     Route: 048
     Dates: start: 20240711, end: 20240711
  18. ACETAMINOPHEN [Concomitant]
     Active Substance: ACETAMINOPHEN
     Dosage: 650 MG
     Dates: start: 20240801, end: 20240801
  19. BENADRYL [Concomitant]
     Active Substance: DIPHENHYDRAMINE HYDROCHLORIDE
     Indication: Premedication
     Dosage: UNK
     Dates: start: 2023, end: 2023
  20. BENADRYL [Concomitant]
     Active Substance: DIPHENHYDRAMINE HYDROCHLORIDE
     Dosage: UNK
     Dates: start: 20240711, end: 20240711
  21. DIPHENHYDRAMINE [Concomitant]
     Active Substance: DIPHENHYDRAMINE
     Indication: Premedication
     Dosage: UNK
     Dates: start: 20231102
  22. DIPHENHYDRAMINE [Concomitant]
     Active Substance: DIPHENHYDRAMINE
     Dosage: 50 MG
     Route: 048
     Dates: start: 20231108
  23. DIPHENHYDRAMINE [Concomitant]
     Active Substance: DIPHENHYDRAMINE
     Dosage: 50 MG
     Route: 048
     Dates: start: 20240711, end: 20240711
  24. DIPHENHYDRAMINE [Concomitant]
     Active Substance: DIPHENHYDRAMINE
     Dosage: 50 MG
     Dates: start: 20240801, end: 20240801
  25. TYLENOL [Concomitant]
     Active Substance: ACETAMINOPHEN
     Indication: Premedication
     Dosage: UNK
     Dates: start: 2023, end: 2023
  26. TYLENOL [Concomitant]
     Active Substance: ACETAMINOPHEN
     Dosage: UNK
     Dates: start: 20240711, end: 20240711

REACTIONS (11)
  - Pneumonitis [Unknown]
  - Heart rate increased [Not Recovered/Not Resolved]
  - Hypertension [Not Recovered/Not Resolved]
  - Body temperature increased [Recovering/Resolving]
  - COVID-19 [Unknown]
  - Infection [Unknown]
  - Product use issue [Unknown]
  - Off label use [Unknown]
  - Intentional product use issue [Unknown]
  - Incorrect product administration duration [Unknown]
  - Off label use [Unknown]

NARRATIVE: CASE EVENT DATE: 20230101
